FAERS Safety Report 5633645-1 (Version None)
Quarter: 2008Q1

REPORT INFORMATION
  Report Type: 
  Country: None (occurrence: None)
  Receive Date: 20080219
  Receipt Date: 20080208
  Transmission Date: 20080703
  Serious: Yes (Death, Hospitalization)
  Sender: FDA-Public Use
  Company Number: 2008US000481

PATIENT
  Age: 58 Year
  Sex: Male

DRUGS (2)
  1. PROGRAF [Suspect]
     Indication: STEM CELL TRANSPLANT
  2. PREDNISONE TAB [Concomitant]

REACTIONS (24)
  - ACUTE MYELOID LEUKAEMIA RECURRENT [None]
  - ALANINE AMINOTRANSFERASE INCREASED [None]
  - ASPARTATE AMINOTRANSFERASE INCREASED [None]
  - BACTERIA BLOOD IDENTIFIED [None]
  - BLOOD CREATININE INCREASED [None]
  - BLOOD PH INCREASED [None]
  - BLOOD UREA INCREASED [None]
  - CHILLS [None]
  - CLOSTRIDIAL INFECTION [None]
  - DISSEMINATED INTRAVASCULAR COAGULATION [None]
  - ECG SIGNS OF MYOCARDIAL ISCHAEMIA [None]
  - HAEMATURIA [None]
  - HYPERPHOSPHATAEMIA [None]
  - HYPOCALCAEMIA [None]
  - INTRAVASCULAR HAEMOLYSIS [None]
  - JAUNDICE [None]
  - LABORATORY TEST INTERFERENCE [None]
  - LUNG INFILTRATION [None]
  - PCO2 DECREASED [None]
  - PO2 INCREASED [None]
  - PROTEIN URINE PRESENT [None]
  - SEPTIC SHOCK [None]
  - SINUS TACHYCARDIA [None]
  - SPHEROCYTIC ANAEMIA [None]
